FAERS Safety Report 6527440-9 (Version None)
Quarter: 2010Q1

REPORT INFORMATION
  Report Type: 
  Country: None (occurrence: None)
  Receive Date: 20100105
  Receipt Date: 20091228
  Transmission Date: 20100710
  Serious: Yes (Hospitalization)
  Sender: FDA-Public Use
  Company Number: FR-PFIZER INC-2009159929

PATIENT
  Age: 69 Year
  Sex: Male

DRUGS (8)
  1. ATORVASTATIN CALCIUM [Suspect]
     Indication: INFARCTION
     Dosage: 80 MG, 1X/DAY
     Route: 048
     Dates: start: 20081020, end: 20091101
  2. CLOPIDOGREL [Concomitant]
  3. KARDEGIC [Concomitant]
  4. TENORMIN [Concomitant]
  5. PRAXILENE [Concomitant]
  6. HYPERIUM [Concomitant]
  7. LASIX [Concomitant]
  8. NEXIUM [Concomitant]

REACTIONS (3)
  - CYTOLYTIC HEPATITIS [None]
  - RENAL FAILURE ACUTE [None]
  - RHABDOMYOLYSIS [None]
